FAERS Safety Report 7655315-0 (Version None)
Quarter: 2011Q3

REPORT INFORMATION
  Report Type: 
  Country: None (occurrence: None)
  Receive Date: 20110729
  Receipt Date: 20110714
  Transmission Date: 20111222
  Serious: Yes (Life-Threatening)
  Sender: FDA-Public Use
  Company Number: JP-20110024

PATIENT
  Age: 72 Year
  Sex: Male

DRUGS (6)
  1. HEPARIN [Concomitant]
  2. OXILAN-350 [Suspect]
     Indication: RENAL FAILURE
     Dosage: 6 ML (6 ML, 1 IN 1 D), INTRA-ARTERIAL
     Route: 013
     Dates: start: 20110614, end: 20110614
  3. OXILAN-350 [Suspect]
     Indication: ANGIOGRAM
     Dosage: 6 ML (6 ML, 1 IN 1 D), INTRA-ARTERIAL
     Route: 013
     Dates: start: 20110614, end: 20110614
  4. OXILAN-350 [Suspect]
     Indication: ANAPHYLACTIC SHOCK
     Dosage: 6 ML (6 ML, 1 IN 1 D), INTRA-ARTERIAL
     Route: 013
     Dates: start: 20110614, end: 20110614
  5. OXILAN-350 [Suspect]
     Indication: ACUTE MYOCARDIAL INFARCTION
     Dosage: 6 ML (6 ML, 1 IN 1 D), INTRA-ARTERIAL
     Route: 013
     Dates: start: 20110614, end: 20110614
  6. NICORANDIL [Concomitant]

REACTIONS (3)
  - ANAPHYLACTIC SHOCK [None]
  - ACUTE MYOCARDIAL INFARCTION [None]
  - RENAL FAILURE [None]
